FAERS Safety Report 7884406-4 (Version None)
Quarter: 2011Q4

REPORT INFORMATION
  Report Type: 
  Country: None (occurrence: None)
  Receive Date: 20111102
  Receipt Date: 20110720
  Transmission Date: 20120403
  Serious: No
  Sender: FDA-Public Use
  Company Number: US-ASTRAZENECA-2011SE43190

PATIENT
  Age: 36 Year
  Sex: Female

DRUGS (1)
  1. VANDETANIB [Suspect]
     Indication: THYROID CANCER
     Route: 048
     Dates: start: 20110606

REACTIONS (7)
  - GAIT DISTURBANCE [None]
  - ARTHRALGIA [None]
  - TUMOUR MARKER INCREASED [None]
  - SWOLLEN TONGUE [None]
  - STOMATITIS [None]
  - PAIN IN EXTREMITY [None]
  - OROPHARYNGEAL PAIN [None]
